FAERS Safety Report 6155165-0 (Version None)
Quarter: 2009Q2

REPORT INFORMATION
  Report Type: 
  Country: None (occurrence: None)
  Receive Date: 20090415
  Receipt Date: 20090410
  Transmission Date: 20091009
  Serious: Yes (Other)
  Sender: FDA-Public Use
  Company Number: US-JNJFOC-20061004182

PATIENT
  Sex: Female

DRUGS (2)
  1. RISPERDAL [Suspect]
     Indication: SLEEP DISORDER THERAPY
  2. RISPERDAL [Suspect]
     Indication: SCHIZOAFFECTIVE DISORDER

REACTIONS (1)
  - DIABETES MELLITUS [None]
